FAERS Safety Report 9678336 (Version 2)
Quarter: 2013Q4

REPORT INFORMATION
  Report Type: Spontaneous
  Country: US (occurrence: None)
  Receive Date: 20131106
  Receipt Date: 20131119
  Transmission Date: 20140711
  Serious: Yes (Hospitalization, Other)
  Sender: FDA-Public Use
  Company Number: 20130615

PATIENT
  Age: 50 Year
  Sex: Female
  Weight: 103 kg

DRUGS (19)
  1. METHYLENE BLUE [Suspect]
     Indication: SCAN PARATHYROID
     Dosage: 7.5 MG/KG (750 MG) OVER 30 MIN
     Route: 042
  2. LITHIUM [Suspect]
     Indication: PRODUCT USED FOR UNKNOWN INDICATION
  3. LAMOTRIGINE [Suspect]
     Indication: PRODUCT USED FOR UNKNOWN INDICATION
  4. CARBAMAZEPINE [Suspect]
     Indication: PRODUCT USED FOR UNKNOWN INDICATION
  5. GABAPENTIN [Suspect]
     Indication: PRODUCT USED FOR UNKNOWN INDICATION
  6. SYNTHROID (LEVOTHYROXINE) [Concomitant]
  7. ATENOLOL [Concomitant]
  8. VERAPAMIL [Concomitant]
  9. OXYBUTYNIN [Concomitant]
  10. LORAZEPAM [Concomitant]
  11. SEVOFLURANE [Concomitant]
  12. MIDAZOLAM [Concomitant]
  13. FENTANYL [Concomitant]
  14. LIDOCAINE [Concomitant]
  15. PROPOFOL [Concomitant]
  16. SUCCINYLCHOLINE [Concomitant]
  17. MORPHINE [Concomitant]
  18. INSULIN [Concomitant]
  19. SIMVASTATIN [Concomitant]

REACTIONS (12)
  - Diabetes insipidus [None]
  - Off label use [None]
  - General physical health deterioration [None]
  - Chromaturia [None]
  - Toxicity to various agents [None]
  - Cardio-respiratory arrest [None]
  - Toxic encephalopathy [None]
  - Drug interaction [None]
  - Lethargy [None]
  - Oxygen saturation decreased [None]
  - Hypernatraemia [None]
  - Electrolyte imbalance [None]
